FAERS Safety Report 19474259 (Version 1)
Quarter: 2021Q2

REPORT INFORMATION
  Report Type: Other
  Country: US (occurrence: US)
  Receive Date: 20210630
  Receipt Date: 20210630
  Transmission Date: 20210717
  Serious: Yes (Other)
  Sender: FDA-Public Use
  Company Number: US-ROCHE-2802939

PATIENT
  Sex: Female
  Weight: 66 kg

DRUGS (18)
  1. NEURONTIN [Concomitant]
     Active Substance: GABAPENTIN
     Dosage: TAKE 1 CAPSULE
     Route: 048
     Dates: start: 20191202
  2. LIPITOR [Concomitant]
     Active Substance: ATORVASTATIN CALCIUM
     Dosage: TAKE 1 TABLET
     Route: 048
     Dates: start: 20200326
  3. CARTIA XT [Concomitant]
     Active Substance: DILTIAZEM HYDROCHLORIDE
     Dosage: TAKE 1 CAPSULE
     Route: 048
     Dates: start: 20200129
  4. ZOLOFT [Concomitant]
     Active Substance: SERTRALINE HYDROCHLORIDE
     Dosage: TAKE 1 TABLET
     Route: 048
     Dates: start: 20200330
  5. APRESOLINE HYDROCHLORIDE [Concomitant]
     Active Substance: HYDRALAZINE HYDROCHLORIDE
     Dosage: TAKE 1 TABLET 3 TIMES
     Route: 048
     Dates: start: 20200508
  6. ASPIRIN. [Concomitant]
     Active Substance: ASPIRIN
     Route: 048
  7. ONDANSETRON ODT [Concomitant]
     Active Substance: ONDANSETRON
     Dosage: TAKE 1 TABLET
     Route: 048
     Dates: start: 20190417
  8. OCREVUS [Suspect]
     Active Substance: OCRELIZUMAB
     Indication: RELAPSING-REMITTING MULTIPLE SCLEROSIS
     Dosage: PRESCRIBED WITH 300 MG, DAY 1 AND 15 LATER 600 MG, EVERY 6 MONTHS
     Route: 042
     Dates: start: 20201203, end: 20201217
  9. KLONOPIN [Suspect]
     Active Substance: CLONAZEPAM
     Indication: PRODUCT USED FOR UNKNOWN INDICATION
     Dosage: TAKE 1 TABLET
     Route: 048
     Dates: start: 20190412
  10. ZESTRIL [Concomitant]
     Active Substance: LISINOPRIL
     Dosage: TAKE 1 TABLET
     Route: 048
     Dates: start: 20200509
  11. REQUIP [Concomitant]
     Active Substance: ROPINIROLE HYDROCHLORIDE
     Dosage: TAKE 0.25 MG 3 TIMES
     Route: 048
  12. MIRAPEX [Concomitant]
     Active Substance: PRAMIPEXOLE DIHYDROCHLORIDE
     Dosage: TAKE 1 TABLET
     Route: 048
     Dates: start: 20200424
  13. BACTROBAN [Concomitant]
     Active Substance: MUPIROCIN\MUPIROCIN CALCIUM
     Dosage: APPLY TOPICALLY DAILY
     Route: 061
     Dates: start: 20191120
  14. GLYCOLAX [Concomitant]
     Active Substance: POLYETHYLENE GLYCOL 3350
     Dosage: TAKE 17 G BY MOUTH 2 TIMES
     Route: 048
     Dates: start: 20200508
  15. PROTONIX [Concomitant]
     Active Substance: PANTOPRAZOLE SODIUM
     Route: 048
     Dates: start: 20200129
  16. FOLVITE [Concomitant]
     Active Substance: FOLIC ACID
     Dosage: TAKE 1 MG
     Route: 048
     Dates: start: 20191008
  17. AZULFIDINE [Concomitant]
     Active Substance: SULFASALAZINE
     Dosage: TAKE 500 MG BY MOUTH 4 TIMES
     Route: 048
  18. LIORESAL [Concomitant]
     Active Substance: BACLOFEN
     Dosage: TAKE 1 TABLET
     Route: 048
     Dates: start: 20200129

REACTIONS (1)
  - Lung neoplasm malignant [Unknown]
